FAERS Safety Report 4784281-0 (Version None)
Quarter: 2005Q3

REPORT INFORMATION
  Report Type: 
  Country: None (occurrence: None)
  Receive Date: 20050930
  Receipt Date: 20050915
  Transmission Date: 20060218
  Serious: Yes (Hospitalization)
  Sender: FDA-Public Use
  Company Number: HQWYE520819SEP05

PATIENT
  Sex: Female
  Weight: 64 kg

DRUGS (8)
  1. ENBREL [Suspect]
     Indication: RHEUMATOID ARTHRITIS
     Route: 058
     Dates: start: 20050713, end: 20050802
  2. PREDNISOLONE [Concomitant]
     Indication: RHEUMATOID ARTHRITIS
     Route: 048
  3. GASTER [Concomitant]
     Indication: GASTRIC ULCER
     Route: 048
  4. ROCALTROL [Concomitant]
     Indication: OSTEOPOROSIS
     Route: 048
  5. VOLTAREN [Concomitant]
     Indication: RHEUMATOID ARTHRITIS
     Route: 048
  6. MUCOSTA [Concomitant]
     Indication: GASTRITIS
     Route: 048
  7. SIMVASTATIN [Concomitant]
     Indication: HYPERLIPIDAEMIA
     Route: 048
  8. ALUMINUM HYDROXIDE AND MAGNESIUM TRISILICATE [Concomitant]
     Indication: GASTRITIS
     Route: 048

REACTIONS (1)
  - GENERALISED ERYTHEMA [None]
